FAERS Safety Report 6181088-7 (Version None)
Quarter: 2009Q2

REPORT INFORMATION
  Report Type: 
  Country: None (occurrence: None)
  Receive Date: 20090501
  Receipt Date: 20090123
  Transmission Date: 20091009
  Serious: Yes (Hospitalization)
  Sender: FDA-Public Use
  Company Number: US025339

PATIENT
  Sex: Male

DRUGS (1)
  1. TREANDA [Suspect]
     Indication: NON-HODGKIN'S LYMPHOMA
     Dosage: 90 MG/M2 ON DAY 1 AND 2 , INTRAVENOUS
     Route: 042
     Dates: start: 20090101, end: 20090101

REACTIONS (1)
  - LEUKOPENIA [None]
